FAERS Safety Report 4621137-8 (Version None)
Quarter: 2005Q1

REPORT INFORMATION
  Report Type: 
  Country: None (occurrence: None)
  Receive Date: 20050328
  Receipt Date: 20050315
  Transmission Date: 20050727
  Serious: Yes (Disabling)
  Sender: FDA-Public Use
  Company Number: 2005SE01650

PATIENT
  Age: 56 Year
  Sex: Male
  Weight: 74 kg

DRUGS (1)
  1. XYLOCAINE W/ EPINEPHRENE [Suspect]
     Indication: LOCAL ANAESTHESIA
     Dosage: 60 MG ONCE IF
     Dates: start: 20041206, end: 20041206

REACTIONS (8)
  - ANOSMIA [None]
  - DISTURBANCE IN ATTENTION [None]
  - FEELING ABNORMAL [None]
  - FEELING DRUNK [None]
  - HEADACHE [None]
  - INSOMNIA [None]
  - NASAL DISCOMFORT [None]
  - NASAL DISORDER [None]
